FAERS Safety Report 4381568-0 (Version None)
Quarter: 2004Q2

REPORT INFORMATION
  Report Type: 
  Country: None (occurrence: None)
  Receive Date: 20040616
  Receipt Date: 20040604
  Transmission Date: 20050107
  Serious: Yes (Hospitalization)
  Sender: FDA-Public Use
  Company Number: HQWYE291407JUN04

PATIENT
  Age: 38 Year
  Sex: Male

DRUGS (1)
  1. EFFEXOR XR [Suspect]
     Indication: MAJOR DEPRESSION
     Dosage: 225 MG 1X PER 1 DAY, ORAL; 300 MG, ORAL
     Route: 048

REACTIONS (6)
  - CONDITION AGGRAVATED [None]
  - DRUG WITHDRAWAL SYNDROME [None]
  - MANIA [None]
  - OBSESSIVE-COMPULSIVE DISORDER [None]
  - SELF MUTILATION [None]
  - SUICIDAL IDEATION [None]
